FAERS Safety Report 9485458 (Version 2)
Quarter: 2013Q4

REPORT INFORMATION
  Report Type: Spontaneous
  Country: US (occurrence: US)
  Receive Date: 20130829
  Receipt Date: 20131010
  Transmission Date: 20140711
  Serious: Yes (Hospitalization, Other)
  Sender: FDA-Public Use
  Company Number: US-BIOGENIDEC-2013BI078784

PATIENT
  Age: 28 Year
  Sex: Female
  Weight: 77 kg

DRUGS (11)
  1. TYSABRI [Suspect]
     Indication: MULTIPLE SCLEROSIS
     Route: 042
     Dates: start: 20090206
  2. LAMICTAL [Concomitant]
     Route: 048
  3. LAMICTAL [Concomitant]
     Route: 048
  4. LAMICTAL [Concomitant]
     Route: 048
  5. DECADRON [Concomitant]
     Dates: start: 20130708, end: 20130812
  6. CELEXA [Concomitant]
     Route: 048
  7. FLEXERIL [Concomitant]
     Indication: MUSCLE SPASMS
     Route: 048
  8. VITAMIN D3 [Concomitant]
     Route: 048
  9. SYNTHROID [Concomitant]
     Route: 048
  10. ZENCHENT [Concomitant]
     Route: 048
  11. SYSTANE ULTRA [Concomitant]
     Route: 047

REACTIONS (1)
  - Convulsion [Recovered/Resolved]
